FAERS Safety Report 23365391 (Version 1)
Quarter: 2024Q1

REPORT INFORMATION
  Report Type: Spontaneous
  Country: US (occurrence: None)
  Receive Date: 20240103
  Receipt Date: 20240103
  Transmission Date: 20240409
  Serious: Yes (Life-Threatening, Hospitalization, Disabling, Other)
  Sender: FDA-Public Use
  Company Number: None

PATIENT
  Age: 64 Year
  Sex: Female
  Weight: 79.38 kg

DRUGS (7)
  1. CARBAMAZEPINE [Suspect]
     Active Substance: CARBAMAZEPINE
     Indication: Product used for unknown indication
     Dosage: OTHER FREQUENCY : 2 ORANGE PILL AM,1;?
     Route: 048
  2. CLOTIMAZOLE [Concomitant]
  3. EPSOM SALT [Concomitant]
     Active Substance: MAGNESIUM SULFATE
  4. ACE BANDAGES WIDE [Concomitant]
  5. IMMUNITY GUMMIES [Concomitant]
  6. VISION SHIELD REFRESH TEARS LUBRICANT EYE DROPS [Concomitant]
  7. EQUATE REDNESS RELIEVER STERILE EYE DROPS [Concomitant]

REACTIONS (6)
  - Muscle spasms [None]
  - Muscle spasms [None]
  - Muscle spasms [None]
  - Muscle spasms [None]
  - Back pain [None]
  - Sciatica [None]

NARRATIVE: CASE EVENT DATE: 20230801
